FAERS Safety Report 15150361 (Version 43)
Quarter: 2021Q2

REPORT INFORMATION
  Report Type: Spontaneous
  Country: CA (occurrence: CA)
  Receive Date: 20180716
  Receipt Date: 20210608
  Transmission Date: 20210716
  Serious: Yes (Other)
  Sender: FDA-Public Use
  Company Number: CA-CELLTRION INC.-2018CA021396

PATIENT

DRUGS (56)
  1. INFLECTRA [Suspect]
     Active Substance: INFLIXIMAB-DYYB
     Dosage: 400 MG AT 2, 6 THEN EVERY 8 WEEKS
     Route: 042
     Dates: start: 20180711, end: 20180711
  2. INFLECTRA [Suspect]
     Active Substance: INFLIXIMAB-DYYB
     Dosage: 400 MG, EVERY 4 WEEKS
     Route: 042
     Dates: start: 20200325, end: 20200325
  3. INFLECTRA [Suspect]
     Active Substance: INFLIXIMAB-DYYB
     Dosage: 400 MG, EVERY 4 WEEKS
     Route: 042
     Dates: start: 20200909, end: 20200909
  4. DOXEPINE [Concomitant]
     Active Substance: DOXEPIN
     Dosage: 10 MG
  5. PREDNISONE. [Concomitant]
     Active Substance: PREDNISONE
     Dosage: 5 DF (TABLETS), DAILY
  6. INFLECTRA [Suspect]
     Active Substance: INFLIXIMAB-DYYB
     Dosage: 400 MG, EVERY 4 WEEKS
     Route: 042
     Dates: start: 20190617, end: 20190617
  7. INFLECTRA [Suspect]
     Active Substance: INFLIXIMAB-DYYB
     Dosage: 400 MG, EVERY 4 WEEKS
     Route: 042
     Dates: start: 20191230, end: 20191230
  8. INFLECTRA [Suspect]
     Active Substance: INFLIXIMAB-DYYB
     Dosage: 400 MG, EVERY 4 WEEKS
     Route: 042
     Dates: start: 20200617, end: 20200617
  9. INFLECTRA [Suspect]
     Active Substance: INFLIXIMAB-DYYB
     Dosage: 400 MG, EVERY 4 WEEKS
     Route: 042
     Dates: start: 20200812, end: 20200812
  10. INFLECTRA [Suspect]
     Active Substance: INFLIXIMAB-DYYB
     Dosage: 400 MG, EVERY 4 WEEKS
     Route: 042
     Dates: start: 20201105, end: 20201105
  11. CELEBREX [Concomitant]
     Active Substance: CELECOXIB
     Dosage: UNK
     Route: 065
     Dates: start: 2018
  12. TYLENOL WITH CODEINE [Concomitant]
     Active Substance: ACETAMINOPHEN\CODEINE PHOSPHATE
     Dosage: UNK
     Dates: start: 20181126
  13. INFLECTRA [Suspect]
     Active Substance: INFLIXIMAB-DYYB
     Dosage: 400 MG AT 2, 6 THEN EVERY 8 WEEKS
     Route: 042
     Dates: start: 20180711, end: 20180711
  14. INFLECTRA [Suspect]
     Active Substance: INFLIXIMAB-DYYB
     Dosage: 400 MG, AT 0, 2, 6 THEN EVERY 6 WEEKS
     Route: 042
     Dates: start: 20190301, end: 20190301
  15. INFLECTRA [Suspect]
     Active Substance: INFLIXIMAB-DYYB
     Dosage: 400 MG, EVERY 4 WEEKS
     Route: 042
     Dates: start: 20191204, end: 20191204
  16. INFLECTRA [Suspect]
     Active Substance: INFLIXIMAB-DYYB
     Dosage: 400 MG, EVERY 4 WEEKS
     Route: 042
     Dates: start: 20200715, end: 20200715
  17. INFLECTRA [Suspect]
     Active Substance: INFLIXIMAB-DYYB
     Dosage: 400 MG, EVERY 4 WEEKS
     Route: 042
     Dates: start: 20201202
  18. INFLECTRA [Suspect]
     Active Substance: INFLIXIMAB-DYYB
     Dosage: 400 MG, EVERY 4 WEEKS
     Route: 042
     Dates: start: 20210521
  19. LOSARTAN. [Concomitant]
     Active Substance: LOSARTAN
     Dosage: 25 MG
     Route: 065
  20. MEZAVANT [Concomitant]
     Active Substance: MESALAMINE
     Dosage: 4 DF, BED TIME
     Dates: start: 20190611
  21. PREDNISONE. [Concomitant]
     Active Substance: PREDNISONE
     Dosage: 5 MG, (TAPERING OFF BY END OF AUG2018)
     Route: 048
  22. INFLECTRA [Suspect]
     Active Substance: INFLIXIMAB-DYYB
     Dosage: 400 MG, EVERY 4 WEEKS
     Route: 042
     Dates: start: 20200127, end: 20200127
  23. INFLECTRA [Suspect]
     Active Substance: INFLIXIMAB-DYYB
     Dosage: 400 MG, EVERY 4 WEEKS
     Route: 042
     Dates: start: 20210326
  24. NAPROXEN. [Concomitant]
     Active Substance: NAPROXEN
     Dosage: 375 MG, UNK
  25. INFLECTRA [Suspect]
     Active Substance: INFLIXIMAB-DYYB
     Dosage: 400 MG AT 2, 6 THEN EVERY 8 WEEKS
     Route: 042
     Dates: start: 20180809, end: 20180809
  26. INFLECTRA [Suspect]
     Active Substance: INFLIXIMAB-DYYB
     Dosage: 400 MG, EVERY 4 WEEKS
     Route: 042
     Dates: start: 20190715, end: 20190715
  27. INFLECTRA [Suspect]
     Active Substance: INFLIXIMAB-DYYB
     Dosage: 400 MG, EVERY 4 WEEKS
     Route: 042
     Dates: start: 20191009, end: 20191009
  28. MEZAVANT [Concomitant]
     Active Substance: MESALAMINE
     Dosage: 4.8 G, DAILY
     Route: 048
  29. VENLAFAXINE [Concomitant]
     Active Substance: VENLAFAXINE HYDROCHLORIDE
     Dosage: 75 MG, UNK
     Route: 065
  30. INFLECTRA [Suspect]
     Active Substance: INFLIXIMAB-DYYB
     Dosage: 600 MG, EVERY 8 WEEKS
     Route: 042
     Dates: start: 20181113, end: 20181113
  31. INFLECTRA [Suspect]
     Active Substance: INFLIXIMAB-DYYB
     Dosage: 600 MG, EVERY 8 WEEKS
     Route: 042
     Dates: start: 20190108, end: 20190108
  32. INFLECTRA [Suspect]
     Active Substance: INFLIXIMAB-DYYB
     Dosage: 400 MG, EVERY 6 WEEKS
     Route: 042
     Dates: start: 20190301, end: 20190301
  33. INFLECTRA [Suspect]
     Active Substance: INFLIXIMAB-DYYB
     Dosage: 400 MG, AT 0, 2, 6 THEN EVERY 6 WEEKS
     Route: 042
     Dates: start: 20190314, end: 20190314
  34. INFLECTRA [Suspect]
     Active Substance: INFLIXIMAB-DYYB
     Dosage: 400 MG, AT 0, 2, 6 THEN EVERY 6 WEEKS
     Route: 042
     Dates: start: 20190408, end: 20190408
  35. INFLECTRA [Suspect]
     Active Substance: INFLIXIMAB-DYYB
     Dosage: 400 MG, EVERY 4 WEEKS
     Route: 042
     Dates: start: 20200424, end: 20200424
  36. 5?ASA [Concomitant]
     Active Substance: MESALAMINE
     Dosage: 1000 MG, 1X/DAY AT NIGHT (HS)
     Route: 054
  37. MEZAVANT [Concomitant]
     Active Substance: MESALAMINE
     Dosage: 4.8 G, 1X/DAY
     Route: 048
  38. INFLECTRA [Suspect]
     Active Substance: INFLIXIMAB-DYYB
     Dosage: 400 MG AT 2, 6 THEN EVERY 8 WEEKS
     Route: 042
     Dates: start: 20181005, end: 20181005
  39. INFLECTRA [Suspect]
     Active Substance: INFLIXIMAB-DYYB
     Dosage: 400 MG, AT 0, 2, 6 THEN EVERY 6 WEEKS (RE?INDUCTION)
     Route: 042
     Dates: start: 20190301, end: 20190520
  40. INFLECTRA [Suspect]
     Active Substance: INFLIXIMAB-DYYB
     Dosage: 400 MG, AT 0, 2, 6 THEN EVERY 6 WEEKS
     Route: 042
     Dates: start: 20190408, end: 20190408
  41. INFLECTRA [Suspect]
     Active Substance: INFLIXIMAB-DYYB
     Dosage: 400 MG, AT 0, 2, 6 THEN EVERY 6 WEEKS
     Route: 042
     Dates: start: 20190521, end: 20190521
  42. INFLECTRA [Suspect]
     Active Substance: INFLIXIMAB-DYYB
     Dosage: 400 MG, EVERY 4 WEEKS
     Route: 042
     Dates: start: 20190813, end: 20190813
  43. INFLECTRA [Suspect]
     Active Substance: INFLIXIMAB-DYYB
     Dosage: 400 MG, EVERY 4 WEEKS
     Route: 042
     Dates: start: 20190911, end: 20190911
  44. INFLECTRA [Suspect]
     Active Substance: INFLIXIMAB-DYYB
     Dosage: 400 MG, EVERY 4 WEEKS
     Route: 042
     Dates: start: 20191106, end: 20191106
  45. INFLECTRA [Suspect]
     Active Substance: INFLIXIMAB-DYYB
     Dosage: 400 MG, EVERY 4 WEEKS
     Route: 042
     Dates: start: 20200225, end: 20200225
  46. DOXEPINE [Concomitant]
     Active Substance: DOXEPIN
     Dosage: 25 MG
     Route: 065
  47. METHYLPREDNISOLONE. [Concomitant]
     Active Substance: METHYLPREDNISOLONE
     Dosage: 60 MG, 2X/DAY (EVERY 12 HOURS FOR 72 H)
     Route: 042
  48. PREDNISONE. [Concomitant]
     Active Substance: PREDNISONE
     Dosage: 20 MG, ALTERNATE DAY
     Route: 048
  49. INFLECTRA [Suspect]
     Active Substance: INFLIXIMAB-DYYB
     Indication: COLITIS ULCERATIVE
     Dosage: 300 MG AT 0, 2, 6 THEN EVERY 8 WEEKS (300MG AT WEEK 0)
     Route: 042
     Dates: start: 20180627, end: 20180627
  50. INFLECTRA [Suspect]
     Active Substance: INFLIXIMAB-DYYB
     Dosage: 400 MG, EVERY 4 WEEKS
     Route: 042
     Dates: start: 20200520, end: 20200520
  51. INFLECTRA [Suspect]
     Active Substance: INFLIXIMAB-DYYB
     Dosage: 400 MG, EVERY 4 WEEKS
     Route: 042
     Dates: start: 20201007, end: 20201007
  52. INFLECTRA [Suspect]
     Active Substance: INFLIXIMAB-DYYB
     Dosage: 400 MG, EVERY 4 WEEKS
     Route: 042
     Dates: start: 20210226
  53. INFLECTRA [Suspect]
     Active Substance: INFLIXIMAB-DYYB
     Dosage: 400 MG, EVERY 4 WEEKS
     Route: 042
     Dates: start: 20210423
  54. PREDNISONE. [Concomitant]
     Active Substance: PREDNISONE
     Dosage: 6 DF, DAILY
  55. PREDNISONE. [Concomitant]
     Active Substance: PREDNISONE
     Dosage: 20 MG, EVERY 2 DAYS(TO BE TAPERED BY 2.5 MG WEEKLY )
     Route: 048
  56. SALOFALK [MESALAZINE] [Concomitant]
     Active Substance: MESALAMINE
     Dosage: 1000 MG, HS (BED TIME)
     Route: 054

REACTIONS (32)
  - Uveitis [Unknown]
  - Rib fracture [Unknown]
  - Drug specific antibody present [Not Recovered/Not Resolved]
  - Rheumatoid arthritis [Not Recovered/Not Resolved]
  - Wrist fracture [Unknown]
  - Inappropriate schedule of product administration [Unknown]
  - Hypoaesthesia [Unknown]
  - Productive cough [Recovering/Resolving]
  - Defaecation urgency [Unknown]
  - Condition aggravated [Not Recovered/Not Resolved]
  - Rhinorrhoea [Unknown]
  - Blood pressure increased [Not Recovered/Not Resolved]
  - Faecal calprotectin increased [Unknown]
  - Off label use [Unknown]
  - Arthritis [Not Recovered/Not Resolved]
  - Heart rate decreased [Unknown]
  - Weight decreased [Unknown]
  - Off label use [Unknown]
  - Malaise [Unknown]
  - Poor quality sleep [Not Recovered/Not Resolved]
  - Vomiting [Unknown]
  - Diarrhoea [Recovered/Resolved]
  - Haemorrhoids [Unknown]
  - Drug level below therapeutic [Not Recovered/Not Resolved]
  - Oxygen saturation decreased [Recovered/Resolved]
  - Fall [Unknown]
  - Off label use [Unknown]
  - Back pain [Unknown]
  - Paraesthesia [Not Recovered/Not Resolved]
  - Abdominal pain lower [Unknown]
  - Intentional product use issue [Unknown]
  - Fatigue [Unknown]

NARRATIVE: CASE EVENT DATE: 2018
